FAERS Safety Report 8886805 (Version 1)
Quarter: 2012Q4

REPORT INFORMATION
  Report Type: 
  Country: FR (occurrence: FR)
  Receive Date: 20121105
  Receipt Date: 20121105
  Transmission Date: 20130627
  Serious: Yes (Other)
  Sender: FDA-Public Use
  Company Number: FR-PFIZER INC-2012270783

PATIENT
  Age: 80 Year
  Sex: Male

DRUGS (1)
  1. VIAGRA [Suspect]
     Dosage: half a 50 mg tablet

REACTIONS (2)
  - Chromaturia [Unknown]
  - Oliguria [Unknown]
